FAERS Safety Report 21170651 (Version 1)
Quarter: 2022Q3

REPORT INFORMATION
  Report Type: Spontaneous
  Country: US (occurrence: None)
  Receive Date: 20220803
  Receipt Date: 20220803
  Transmission Date: 20221026
  Serious: Yes (Hospitalization)
  Sender: FDA-Public Use
  Company Number: None

PATIENT
  Age: 86 Year
  Sex: Female
  Weight: 63.96 kg

DRUGS (1)
  1. MAGNESIUM CITRATE [Suspect]
     Active Substance: MAGNESIUM CITRATE

REACTIONS (5)
  - Vomiting [None]
  - Dizziness [None]
  - Insomnia [None]
  - Nausea [None]
  - Hallucination [None]

NARRATIVE: CASE EVENT DATE: 20220712
